FAERS Safety Report 8365923-X (Version None)
Quarter: 2012Q2

REPORT INFORMATION
  Report Type: 
  Country: None (occurrence: None)
  Receive Date: 20120515
  Receipt Date: 20120509
  Transmission Date: 20120825
  Serious: Yes (Death)
  Sender: FDA-Public Use
  Company Number: 2012-2112

PATIENT

DRUGS (2)
  1. DYSPORT [Suspect]
     Indication: DROOLING
     Dosage: SINGLE CYCLE
  2. DYSPORT [Suspect]
     Indication: OFF LABEL USE
     Dosage: SINGLE CYCLE

REACTIONS (1)
  - PNEUMONIA [None]
